FAERS Safety Report 6692400-4 (Version None)
Quarter: 2010Q2

REPORT INFORMATION
  Report Type: 
  Country: None (occurrence: None)
  Receive Date: 20100419
  Receipt Date: 20100405
  Transmission Date: 20101027
  Serious: Yes (Other)
  Sender: FDA-Public Use
  Company Number: 7000150

PATIENT
  Age: 34 Year
  Sex: Male

DRUGS (3)
  1. REBIF [Suspect]
     Indication: DRUG USE FOR UNKNOWN INDICATION
     Dates: start: 20080101
  2. PREDNISONE TAB [Suspect]
     Dosage: 60 MG, ORAL; 40 MG, ORAL, 20 MG, ORAL, 10 MG, ORAL
     Route: 048
     Dates: start: 20080201, end: 20080101
  3. SOLU-MEDROL [Suspect]
     Dosage: 500 MG, 2 IN 1 D, INTRAVENOUS (NOT OTHERWISE SPECIFIED)
     Route: 042

REACTIONS (1)
  - OSTEONECROSIS [None]
